FAERS Safety Report 25422197 (Version 1)
Quarter: 2025Q2

REPORT INFORMATION
  Report Type: Spontaneous
  Country: US (occurrence: US)
  Receive Date: 20250611
  Receipt Date: 20250611
  Transmission Date: 20250717
  Serious: No
  Sender: MYLAN
  Company Number: US-MYLANLABS-2025M1046096

PATIENT
  Age: 37 Year
  Sex: Female
  Weight: 58.05 kg

DRUGS (1)
  1. ESTRADIOL TRANSDERMAL SYSTEM [Suspect]
     Active Substance: ESTRADIOL
     Indication: Artificial menopause
     Dosage: 0.075 MILLIGRAM, QD (PER DAY, TWICE WEEKLY)

REACTIONS (4)
  - Urticaria [Unknown]
  - Feeling abnormal [Unknown]
  - Loss of personal independence in daily activities [Unknown]
  - Product label issue [Unknown]

NARRATIVE: CASE EVENT DATE: 20250501
